FAERS Safety Report 19924158 (Version 1)
Quarter: 2021Q4

REPORT INFORMATION
  Report Type: Spontaneous
  Country: NL (occurrence: FR)
  Receive Date: 20211006
  Receipt Date: 20211006
  Transmission Date: 20220303
  Serious: Yes (Hospitalization)
  Sender: FDA-Public Use
  Company Number: None

PATIENT
  Age: 65 Year
  Sex: Female
  Weight: 96 kg

DRUGS (6)
  1. LEVOFLOXACIN [Suspect]
     Active Substance: LEVOFLOXACIN
     Indication: Legionella infection
     Route: 065
     Dates: start: 20210819, end: 20210819
  2. CIPROFLOXACIN [Suspect]
     Active Substance: CIPROFLOXACIN
     Indication: Legionella infection
     Route: 065
     Dates: start: 20210818, end: 20210818
  3. OFLOXACIN [Suspect]
     Active Substance: OFLOXACIN
     Indication: Legionella infection
     Route: 065
     Dates: start: 20210819
  4. CEFTRIAXONE SODIUM [Suspect]
     Active Substance: CEFTRIAXONE SODIUM
     Indication: Legionella infection
     Route: 065
     Dates: start: 20210817, end: 20210817
  5. AMOXICILLIN\CLAVULANATE POTASSIUM [Suspect]
     Active Substance: AMOXICILLIN\CLAVULANATE POTASSIUM
     Indication: Legionella infection
     Route: 065
     Dates: start: 20210817, end: 20210817
  6. SPIRAMYCIN [Suspect]
     Active Substance: SPIRAMYCIN
     Indication: Legionella infection
     Route: 065
     Dates: start: 20210817

REACTIONS (3)
  - Condition aggravated [Recovering/Resolving]
  - Cholestasis [Recovering/Resolving]
  - Hepatic cytolysis [Recovering/Resolving]

NARRATIVE: CASE EVENT DATE: 20210823
